FAERS Safety Report 7199438-1 (Version None)
Quarter: 2010Q4

REPORT INFORMATION
  Report Type: 
  Country: None (occurrence: None)
  Receive Date: 20101223
  Receipt Date: 20101223
  Transmission Date: 20110411
  Serious: Yes (Other)
  Sender: FDA-Public Use
  Company Number: None

PATIENT
  Sex: Male
  Weight: 74.8435 kg

DRUGS (1)
  1. DARVOCET [Suspect]
     Indication: BACK PAIN
     Dosage: 100-650 3 X DAILY
     Dates: start: 19970101

REACTIONS (3)
  - CARDIAC DISORDER [None]
  - DIZZINESS [None]
  - MYOCARDIAL INFARCTION [None]
